FAERS Safety Report 6866504-7 (Version None)
Quarter: 2010Q2

REPORT INFORMATION
  Report Type: 
  Country: None (occurrence: None)
  Receive Date: 20100602
  Receipt Date: 20100319
  Transmission Date: 20101027
  Serious: Yes (Other)
  Sender: FDA-Public Use
  Company Number: 228290USA

PATIENT
  Sex: Female

DRUGS (1)
  1. THEOPHYLLINE-SR [Suspect]
     Indication: ASTHMA
     Dosage: ORAL
     Route: 048

REACTIONS (3)
  - CONVULSION [None]
  - LOSS OF CONSCIOUSNESS [None]
  - THERAPEUTIC AGENT TOXICITY [None]
